FAERS Safety Report 12162280 (Version 1)
Quarter: 2016Q1

REPORT INFORMATION
  Report Type: Spontaneous
  Country: IN (occurrence: None)
  Receive Date: 20160307
  Receipt Date: 20160307
  Transmission Date: 20160526
  Serious: No
  Sender: FDA-Public Use
  Company Number: None

PATIENT
  Age: 20 Year
  Sex: Male
  Weight: 89 kg

DRUGS (3)
  1. PREGABALIN 75 MG KNOLL [Suspect]
     Active Substance: PREGABALIN
     Indication: INTERVERTEBRAL DISC PROTRUSION
     Dosage: 4 PILLS, TWICE DAILY, TAKEN BY MOUTH
  2. PREGABALIN. [Concomitant]
     Active Substance: PREGABALIN
  3. DULEXOTIN [Concomitant]

REACTIONS (3)
  - Mood swings [None]
  - Libido decreased [None]
  - Depression [None]
